FAERS Safety Report 5885677-6 (Version None)
Quarter: 2008Q3

REPORT INFORMATION
  Report Type: 
  Country: None (occurrence: None)
  Receive Date: 20080912
  Receipt Date: 20080829
  Transmission Date: 20090109
  Serious: Yes (Life-Threatening, Hospitalization)
  Sender: FDA-Public Use
  Company Number: 95112

PATIENT
  Age: 44 Year
  Sex: Female

DRUGS (3)
  1. ACETAMINOPHEN SLOW RELEASE [Suspect]
     Dosage: ORAL
     Route: 048
  2. METHYLDOPA [Concomitant]
  3. MANY OTHER UNSPECIFIED DRUGS [Concomitant]

REACTIONS (3)
  - HEPATIC NECROSIS [None]
  - LIVER INJURY [None]
  - OVERDOSE [None]
